FAERS Safety Report 13259371 (Version 3)
Quarter: 2017Q1

REPORT INFORMATION
  Report Type: Spontaneous
  Country: US (occurrence: US)
  Receive Date: 20170222
  Receipt Date: 20170331
  Transmission Date: 20170428
  Serious: No
  Sender: FDA-Public Use
  Company Number: US-PFIZER INC-2017074337

PATIENT
  Age: 64 Year
  Sex: Female
  Weight: 52 kg

DRUGS (1)
  1. NEURONTIN [Suspect]
     Active Substance: GABAPENTIN
     Indication: HOT FLUSH
     Dosage: 800 MG, 3X/DAY
     Dates: start: 2001

REACTIONS (4)
  - Lymphocyte count abnormal [Unknown]
  - Rash [Not Recovered/Not Resolved]
  - Drug ineffective for unapproved indication [Unknown]
  - Intentional product misuse [Unknown]

NARRATIVE: CASE EVENT DATE: 201503
